FAERS Safety Report 6534747-8 (Version None)
Quarter: 2010Q1

REPORT INFORMATION
  Report Type: 
  Country: None (occurrence: None)
  Receive Date: 20100108
  Receipt Date: 20091019
  Transmission Date: 20100710
  Serious: No
  Sender: FDA-Public Use
  Company Number: 2009-00665

PATIENT
  Age: 56 Year
  Sex: Female

DRUGS (12)
  1. COLD REMEDY RAPIDMELTS WITH VITAMIN C [Suspect]
     Dosage: Q3 HRS FOR 5 DAYS
     Dates: start: 20091012, end: 20091017
  2. TIMOPTIC [Concomitant]
  3. XALATAN OPTH DROPS [Concomitant]
  4. AZOPT OPTH DROPS [Concomitant]
  5. MULTI-VITAMIN [Concomitant]
  6. VITAMIN D [Concomitant]
  7. BILBERRY [Concomitant]
  8. CALCIUM WITH MAGNESIUM [Concomitant]
  9. BETAFOOD [Concomitant]
  10. ENZYMES [Concomitant]
  11. CHROMIUM PICOLINATE [Concomitant]
  12. SAM E [Concomitant]

REACTIONS (1)
  - AGEUSIA [None]
